FAERS Safety Report 6803071-8 (Version None)
Quarter: 2010Q2

REPORT INFORMATION
  Report Type: 
  Country: None (occurrence: None)
  Receive Date: 20100628
  Receipt Date: 20100624
  Transmission Date: 20101027
  Serious: Yes (Other)
  Sender: FDA-Public Use
  Company Number: A0866913A

PATIENT
  Age: 55 Year
  Sex: Female

DRUGS (1)
  1. ABREVA [Suspect]
     Dates: start: 20100521, end: 20100604

REACTIONS (5)
  - BIOPSY [None]
  - ILL-DEFINED DISORDER [None]
  - ORAL HERPES [None]
  - SQUAMOUS CELL CARCINOMA [None]
  - SURGERY [None]
